FAERS Safety Report 21728354 (Version 1)
Quarter: 2022Q4

REPORT INFORMATION
  Report Type: Spontaneous
  Country: US (occurrence: US)
  Receive Date: 20221214
  Receipt Date: 20221214
  Transmission Date: 20230113
  Serious: No
  Sender: FDA-Public Use
  Company Number: US-PFIZER INC-202201365891

PATIENT
  Age: 86 Year
  Sex: Female
  Weight: 58.51 kg

DRUGS (1)
  1. FUROSEMIDE [Suspect]
     Active Substance: FUROSEMIDE
     Indication: Diuretic therapy
     Dosage: UNK

REACTIONS (6)
  - Micturition frequency decreased [Unknown]
  - Urine output decreased [Unknown]
  - Chromaturia [Unknown]
  - Urine abnormality [Unknown]
  - Urine analysis abnormal [Unknown]
  - Drug ineffective [Unknown]

NARRATIVE: CASE EVENT DATE: 20221104
